FAERS Safety Report 10343883 (Version 1)
Quarter: 2014Q3

REPORT INFORMATION
  Report Type: Report from Study
  Country: MX (occurrence: MX)
  Receive Date: 20140726
  Receipt Date: 20140726
  Transmission Date: 20150326
  Serious: Yes (Other)
  Sender: FDA-Public Use
  Company Number: PHHY2013MX146925

PATIENT
  Age: 58 Year
  Sex: Female

DRUGS (3)
  1. FORADIL [Suspect]
     Active Substance: FORMOTEROL FUMARATE
     Indication: ASTHMA
     Dosage: 2 DF, DAILY
     Dates: start: 20131110
  2. ATROVENT [Concomitant]
     Active Substance: IPRATROPIUM BROMIDE
     Indication: ASTHMA
     Dosage: 2 DF, DAILY
     Route: 065
     Dates: start: 20131110
  3. MIFLONIDE [Concomitant]
     Active Substance: BUDESONIDE
     Dosage: UNK UKN, UNK
     Dates: start: 201307, end: 20131201

REACTIONS (5)
  - Cough [Not Recovered/Not Resolved]
  - Nasal congestion [Not Recovered/Not Resolved]
  - Bronchial obstruction [Not Recovered/Not Resolved]
  - Lip dry [Not Recovered/Not Resolved]
  - Agitation [Not Recovered/Not Resolved]

NARRATIVE: CASE EVENT DATE: 20131205
